FAERS Safety Report 7555534-8 (Version None)
Quarter: 2011Q2

REPORT INFORMATION
  Report Type: 
  Country: None (occurrence: None)
  Receive Date: 20110617
  Receipt Date: 20020829
  Transmission Date: 20111010
  Serious: Yes (Death, Other)
  Sender: FDA-Public Use
  Company Number: PHBS2002VE10407

PATIENT
  Age: 63 Year
  Sex: Female

DRUGS (1)
  1. STARLIX [Suspect]
     Indication: DIABETES MELLITUS
     Route: 048
     Dates: start: 20020301

REACTIONS (8)
  - URETERIC FISTULA [None]
  - OEDEMA [None]
  - URINARY TRACT INFECTION [None]
  - SEPSIS [None]
  - HYPOGLYCAEMIC COMA [None]
  - HYPOGLYCAEMIA [None]
  - URINARY RETENTION [None]
  - NEOPLASM MALIGNANT [None]
